FAERS Safety Report 17493447 (Version 1)
Quarter: 2020Q1

REPORT INFORMATION
  Report Type: Spontaneous
  Country: US (occurrence: US)
  Receive Date: 20200303
  Receipt Date: 20200303
  Transmission Date: 20200409
  Serious: No
  Sender: FDA-Public Use
  Company Number: US-AMNEAL PHARMACEUTICALS-2019-IPXL-01138

PATIENT
  Sex: Male

DRUGS (1)
  1. RYTARY [Suspect]
     Active Substance: CARBIDOPA\LEVODOPA
     Indication: PRODUCT USED FOR UNKNOWN INDICATION
     Dosage: 4 CAPSULES AT 8AM, 3 CAPS AT NOON, 4 CAPS AT 4PM, AND 3 CAPS AT 8PM
     Route: 048

REACTIONS (3)
  - Dizziness postural [Unknown]
  - Weight decreased [Unknown]
  - Prescribed overdose [Unknown]
